FAERS Safety Report 6327584-0 (Version None)
Quarter: 2009Q3

REPORT INFORMATION
  Report Type: 
  Country: None (occurrence: None)
  Receive Date: 20090825
  Receipt Date: 20090105
  Transmission Date: 20100115
  Serious: Yes (Hospitalization)
  Sender: FDA-Public Use
  Company Number: FR-WYE-H09590909

PATIENT
  Age: 85 Year
  Sex: Male

DRUGS (3)
  1. INIPOMP [Suspect]
     Dosage: 20 MG, EXACT DAILY DOSE NOT REPORTED
     Route: 065
  2. HYDROCHLOROTHIAZIDE [Suspect]
     Indication: HYPERTENSION
     Dosage: UNSPECIFIED
     Route: 065
  3. OLMESARTAN MEDOXOMIL [Suspect]
     Indication: HYPERTENSION
     Dosage: UNSPECIFIED
     Route: 065

REACTIONS (1)
  - HYPONATRAEMIA [None]
